FAERS Safety Report 19951983 (Version 2)
Quarter: 2021Q4

REPORT INFORMATION
  Report Type: Spontaneous
  Country: JP (occurrence: JP)
  Receive Date: 20211014
  Receipt Date: 20211209
  Transmission Date: 20220303
  Serious: Yes (Other)
  Sender: FDA-Public Use
  Company Number: JP-SAKK-2021SA334569AA

PATIENT
  Age: 45 Year
  Sex: Male
  Weight: 55 kg

DRUGS (14)
  1. DUPIXENT [Suspect]
     Active Substance: DUPILUMAB
     Indication: Dermatitis atopic
     Dosage: 300 MG, QOW
     Route: 058
     Dates: start: 201908, end: 20200613
  2. DUPIXENT [Suspect]
     Active Substance: DUPILUMAB
     Dosage: 300 MG, QM
     Route: 058
     Dates: start: 20200718
  3. DUPIXENT [Suspect]
     Active Substance: DUPILUMAB
     Dosage: 300 MG, Q2M
     Route: 058
  4. DUPIXENT [Suspect]
     Active Substance: DUPILUMAB
     Dosage: 300 MG, QM
     Route: 058
     Dates: start: 20210227, end: 20211002
  5. ROXITHROMYCIN [Concomitant]
     Active Substance: ROXITHROMYCIN
     Indication: Infection prophylaxis
     Dosage: 250 MG, 2T, BID (AFTER BREAKFAST AND SUPPER)
     Route: 048
     Dates: start: 20210918
  6. BILASTINE [Concomitant]
     Active Substance: BILASTINE
     Indication: Pruritus
     Dosage: 20 MG, 1T, HS
     Route: 048
     Dates: start: 20201128, end: 20210814
  7. HERBALS [Concomitant]
     Active Substance: HERBALS
     Indication: Erythema
     Dosage: 5 G, BID (AFTER BREAKFAST AND SUPPER)
     Route: 065
     Dates: start: 20210710, end: 20210918
  8. MINOCYCLINE HYDROCHLORIDE [Concomitant]
     Active Substance: MINOCYCLINE HYDROCHLORIDE
     Indication: Infection prophylaxis
     Dosage: 100 MG, 2 CAP, BID (AFTER BREAKFAST AND SUPPER)
     Route: 048
     Dates: start: 20210213, end: 20210605
  9. DELGOCITINIB [Concomitant]
     Active Substance: DELGOCITINIB
     Indication: Dermatitis atopic
     Dosage: ADEQUATE DOSE (0.5%)
     Route: 061
     Dates: start: 20200718
  10. DELGOCITINIB [Concomitant]
     Active Substance: DELGOCITINIB
     Dosage: ADEQUATE DOSE (0.25%)
     Route: 061
     Dates: start: 20211002
  11. TACROLIMUS [Concomitant]
     Active Substance: TACROLIMUS
     Indication: Dermatitis atopic
     Dosage: ADEQUATE DOSE
     Route: 061
  12. CLOBETASONE BUTYRATE [Concomitant]
     Active Substance: CLOBETASONE BUTYRATE
     Indication: Dermatitis atopic
     Dosage: ADEQUATE DOSE
     Route: 061
  13. BETAMETHASONE BUTYRATE PROPIONATE [Concomitant]
     Active Substance: BETAMETHASONE BUTYRATE PROPIONATE
     Indication: Dermatitis atopic
     Dosage: ADEQUATE DOSE
     Route: 061
  14. PARITREX [Concomitant]
     Indication: Herpes simplex
     Dosage: ADEQUATE DOSE
     Route: 065
     Dates: start: 20210123

REACTIONS (2)
  - Corneal disorder [Recovered/Resolved with Sequelae]
  - Herpes zoster [Recovered/Resolved]

NARRATIVE: CASE EVENT DATE: 20200613
